FAERS Safety Report 14265391 (Version 2)
Quarter: 2018Q1

REPORT INFORMATION
  Report Type: Spontaneous
  Country: US (occurrence: US)
  Receive Date: 20171208
  Receipt Date: 20180131
  Transmission Date: 20180508
  Serious: Yes (Hospitalization, Other)
  Sender: FDA-Public Use
  Company Number: US-DSJP-DSU-2017-133159

PATIENT

DRUGS (2)
  1. BENICAR HCT [Suspect]
     Active Substance: HYDROCHLOROTHIAZIDE\OLMESARTAN MEDOXOMIL
     Indication: PRODUCT USED FOR UNKNOWN INDICATION
     Dosage: 40/25MG, UNK
     Dates: start: 20060706, end: 20130911
  2. BENICAR HCT [Suspect]
     Active Substance: HYDROCHLOROTHIAZIDE\OLMESARTAN MEDOXOMIL
     Dosage: 40/12.5MG, UNK
     Dates: start: 20060706, end: 20130911

REACTIONS (5)
  - Cholelithiasis [Unknown]
  - Syncope [Unknown]
  - Constipation [Unknown]
  - Sprue-like enteropathy [Unknown]
  - Cholecystitis acute [Unknown]

NARRATIVE: CASE EVENT DATE: 20080814
